FAERS Safety Report 9175846 (Version 1)
Quarter: 2013Q1

REPORT INFORMATION
  Report Type: Spontaneous
  Country: IT (occurrence: IT)
  Receive Date: 20130320
  Receipt Date: 20130320
  Transmission Date: 20140127
  Serious: Yes (Disabling, Other)
  Sender: FDA-Public Use
  Company Number: IT-B.I. PHARMACEUTICALS,INC./RIDGEFIELD-2013-BI-06876GD

PATIENT
  Age: 74 Year
  Sex: Male

DRUGS (7)
  1. PRAMIPEXOLE [Suspect]
     Indication: PARKINSON^S DISEASE
     Dosage: 2.1 MG
  2. PRAMIPEXOLE [Suspect]
     Dosage: 2.1 MG
  3. PRAMIPEXOLE [Suspect]
     Dosage: 3.5 MG
  4. AMANTADINE [Suspect]
     Indication: PARKINSON^S DISEASE
     Dosage: 50 MG
  5. LEVODOPA [Suspect]
     Indication: PARKINSON^S DISEASE
     Dosage: 600 MG
  6. LEVODOPA [Suspect]
     Dosage: FORMULATION: EXTENDED RELEASED, UP TO 1400 MG
  7. RASAGILINE [Suspect]
     Indication: PARKINSON^S DISEASE
     Dosage: 1 MG

REACTIONS (7)
  - Dyskinesia [Unknown]
  - Dopamine dysregulation syndrome [Unknown]
  - On and off phenomenon [Unknown]
  - Anxiety [Unknown]
  - Depressed mood [Unknown]
  - Agitation [Unknown]
  - Hypomania [Unknown]
